FAERS Safety Report 6072460-4 (Version None)
Quarter: 2009Q1

REPORT INFORMATION
  Report Type: 
  Country: None (occurrence: None)
  Receive Date: 20090210
  Receipt Date: 20090129
  Transmission Date: 20090719
  Serious: Yes (Death, Other)
  Sender: FDA-Public Use
  Company Number: HR-PFIZER INC-2008154823

PATIENT

DRUGS (3)
  1. SUTENT [Suspect]
     Indication: GASTROINTESTINAL STROMAL TUMOUR
     Dosage: 50 MG, 1X/DAY
     Route: 048
     Dates: start: 20081029, end: 20081217
  2. KETONAL [Concomitant]
     Route: 048
  3. DURAGESIC-100 [Concomitant]
     Route: 062

REACTIONS (8)
  - ABDOMINAL DISCOMFORT [None]
  - ANOREXIA [None]
  - DEATH [None]
  - DRY MOUTH [None]
  - OEDEMA PERIPHERAL [None]
  - SKIN DISCOLOURATION [None]
  - VOMITING [None]
  - WEIGHT DECREASED [None]
